FAERS Safety Report 6473744-8 (Version None)
Quarter: 2009Q4

REPORT INFORMATION
  Report Type: 
  Country: None (occurrence: None)
  Receive Date: 20091204
  Receipt Date: 20091126
  Transmission Date: 20100525
  Serious: Yes (Other)
  Sender: FDA-Public Use
  Company Number: DE-JNJFOC-20091103899

PATIENT
  Sex: Male

DRUGS (10)
  1. RISPERDAL [Suspect]
     Route: 048
  2. RISPERDAL [Suspect]
     Indication: DRUG USE FOR UNKNOWN INDICATION
     Route: 048
  3. INVEGA [Suspect]
     Indication: DRUG USE FOR UNKNOWN INDICATION
     Route: 048
  4. CYMBALTA [Concomitant]
     Route: 065
  5. CITALOPRAM HYDROBROMIDE [Concomitant]
     Route: 065
  6. METFORMIN HCL [Concomitant]
     Route: 065
  7. INSULIN [Concomitant]
     Route: 065
  8. DIURETIC [Concomitant]
     Route: 048
  9. ANTI-ASTHMATICS [Concomitant]
     Route: 048
  10. ANTIHYPERTENSIVE [Concomitant]
     Route: 048

REACTIONS (7)
  - ADVERSE EVENT [None]
  - BLOOD GLUCOSE ABNORMAL [None]
  - DIZZINESS [None]
  - FATIGUE [None]
  - NIGHTMARE [None]
  - RESTLESSNESS [None]
  - SLEEP DISORDER [None]
